FAERS Safety Report 16215885 (Version 3)
Quarter: 2020Q1

REPORT INFORMATION
  Report Type: Spontaneous
  Country: US (occurrence: US)
  Receive Date: 20190419
  Receipt Date: 20200120
  Transmission Date: 20200409
  Serious: No
  Sender: FDA-Public Use
  Company Number: US-INSMED, INC.-US-INS-19-00708

PATIENT
  Sex: Female

DRUGS (2)
  1. LAMIRA NEBULIZER SYSTEM [Suspect]
     Active Substance: DEVICE
  2. ARIKAYCE [Suspect]
     Active Substance: AMIKACIN
     Indication: MYCOBACTERIAL INFECTION
     Dosage: ARIKAYCE DELIVERED ON 14-FEB-2019
     Route: 055
     Dates: end: 2019

REACTIONS (5)
  - Abdominal pain upper [Unknown]
  - Epistaxis [Unknown]
  - Haemoptysis [Unknown]
  - Aphonia [Unknown]
  - Diarrhoea [Unknown]
